FAERS Safety Report 6644378-7 (Version None)
Quarter: 2010Q1

REPORT INFORMATION
  Report Type: 
  Country: None (occurrence: None)
  Receive Date: 20100319
  Receipt Date: 20100319
  Transmission Date: 20100710
  Serious: No
  Sender: FDA-Public Use
  Company Number: None

PATIENT
  Age: 68 Year
  Sex: Female
  Weight: 70.3 kg

DRUGS (1)
  1. OPTIRAY 350 [Suspect]
     Dosage: 100 ML X1 IV
     Route: 042
     Dates: start: 20100304

REACTIONS (2)
  - DYSPNOEA [None]
  - PRURITUS [None]
